FAERS Safety Report 22241792 (Version 4)
Quarter: 2023Q2

REPORT INFORMATION
  Report Type: Report from Study
  Country: KR (occurrence: KR)
  Receive Date: 20230421
  Receipt Date: 20230509
  Transmission Date: 20230722
  Serious: Yes (Death, Life-Threatening, Hospitalization, Other)
  Sender: FDA-Public Use
  Company Number: KR-BEIGENE AUS PTY LTD-BGN-2023-003140

PATIENT
  Age: 57 Year
  Sex: Male
  Weight: 67.5 kg

DRUGS (9)
  1. TRASTUZUMAB [Suspect]
     Active Substance: TRASTUZUMAB
     Indication: Adenocarcinoma gastric
     Dosage: FIRST CYCLE 8 MG/KG AND SUBSEQUENT CYCLES 6 MG/KG, Q3WK
     Route: 042
     Dates: start: 20230323, end: 20230413
  2. CAPECITABINE [Concomitant]
     Active Substance: CAPECITABINE
     Indication: Adenocarcinoma gastric
     Dosage: 1000 MG/M2, Q3W
     Route: 048
     Dates: start: 20230323, end: 20230327
  3. CAPECITABINE [Concomitant]
     Active Substance: CAPECITABINE
     Dosage: DOSE REDUCED ON CYCLE 2
     Route: 048
     Dates: start: 20230413
  4. GANAKHAN [Concomitant]
     Indication: Gastritis
     Dosage: 150 MG, TID
     Route: 065
     Dates: start: 202205
  5. NALOXONE HYDROCHLORIDE\OXYCODONE HYDROCHLORIDE [Concomitant]
     Active Substance: NALOXONE HYDROCHLORIDE\OXYCODONE HYDROCHLORIDE
     Indication: Abdominal pain
     Dosage: 10 MG, BID
     Route: 065
     Dates: start: 20230308
  6. ACETAMINOPHEN [Concomitant]
     Active Substance: ACETAMINOPHEN
     Indication: Chemotherapy side effect prophylaxis
     Dosage: 650 MG, ONCE
     Route: 065
     Dates: start: 20230413, end: 20230413
  7. DEXAMETHASONE [Concomitant]
     Active Substance: DEXAMETHASONE
     Indication: Chemotherapy side effect prophylaxis
     Dosage: 10 MG, ONCE
     Route: 065
     Dates: start: 20230413, end: 20230413
  8. PENIRAMIN [Concomitant]
     Indication: Chemotherapy side effect prophylaxis
     Dosage: 4 MG, ONCE
     Route: 065
     Dates: start: 20230413, end: 20230413
  9. ALOXI [Concomitant]
     Active Substance: PALONOSETRON HYDROCHLORIDE
     Indication: Chemotherapy side effect prophylaxis
     Dosage: 0.25 MG, ONCE
     Route: 065
     Dates: start: 20230413, end: 20230413

REACTIONS (1)
  - Gastrointestinal haemorrhage [Fatal]

NARRATIVE: CASE EVENT DATE: 20230415
